FAERS Safety Report 12236755 (Version 1)
Quarter: 2016Q2

REPORT INFORMATION
  Report Type: Spontaneous
  Country: US (occurrence: US)
  Receive Date: 20160405
  Receipt Date: 20160405
  Transmission Date: 20160815
  Serious: No
  Sender: FDA-Public Use
  Company Number: US-PAR PHARMACEUTICAL, INC-2016SCPR015078

PATIENT

DRUGS (14)
  1. GEODON [Concomitant]
     Active Substance: ZIPRASIDONE HYDROCHLORIDE\ZIPRASIDONE MESYLATE
     Indication: AFFECTIVE DISORDER
     Dosage: 1 DF, OD
     Route: 048
  2. AMBIEN [Concomitant]
     Active Substance: ZOLPIDEM TARTRATE
     Indication: SLEEP DISORDER
     Dosage: 1 DF, OD
     Route: 048
  3. PROBIOTIC                          /06395501/ [Concomitant]
     Active Substance: BIFIDOBACTERIUM ANIMALIS SUBSP. LACTIS
     Indication: SUPPLEMENTATION THERAPY
     Dosage: UNK, UNKNOWN
     Route: 048
  4. VALTREX [Concomitant]
     Active Substance: VALACYCLOVIR HYDROCHLORIDE
     Indication: PRODUCT USED FOR UNKNOWN INDICATION
     Dosage: 1 DF, OD
     Route: 048
  5. ASPIRIN                            /00002701/ [Concomitant]
     Active Substance: ASPIRIN
     Indication: ISCHAEMIC HEART DISEASE PROPHYLAXIS
     Dosage: 1 DF, OD
     Route: 048
  6. METFORMIN [Concomitant]
     Active Substance: METFORMIN HYDROCHLORIDE
     Indication: TYPE 2 DIABETES MELLITUS
     Dosage: 1 DF, OD
     Route: 048
  7. CALCIUM [Concomitant]
     Active Substance: CALCIUM
     Indication: SUPPLEMENTATION THERAPY
     Dosage: 1 DF, OD
     Route: 048
  8. OMEGA-3-ACID ETHYL ESTERS. [Suspect]
     Active Substance: OMEGA-3-ACID ETHYL ESTERS
     Dosage: 1 DF, OD
     Route: 048
     Dates: start: 20150104
  9. LAMICTAL [Concomitant]
     Active Substance: LAMOTRIGINE
     Indication: AFFECTIVE DISORDER
     Dosage: 1 DF, OD
     Route: 048
  10. OMEGA-3-ACID ETHYL ESTERS. [Suspect]
     Active Substance: OMEGA-3-ACID ETHYL ESTERS
     Indication: BLOOD CHOLESTEROL ABNORMAL
     Dosage: 1 DF, OD
     Route: 048
     Dates: start: 2013, end: 201510
  11. ANTABUSE [Concomitant]
     Active Substance: DISULFIRAM
     Indication: ALCOHOLISM
     Dosage: 1 DF, OD
     Route: 048
  12. OMEGA-3-ACID ETHYL ESTERS. [Suspect]
     Active Substance: OMEGA-3-ACID ETHYL ESTERS
     Dosage: 1 DF, OD
     Route: 048
     Dates: start: 20151027, end: 201512
  13. LEXAPRO [Concomitant]
     Active Substance: ESCITALOPRAM OXALATE
     Indication: BIPOLAR DISORDER
     Dosage: 1 DF, OD
     Route: 048
  14. VISTARIL [Concomitant]
     Active Substance: HYDROXYZINE PAMOATE
     Indication: ANXIETY
     Dosage: 1 DF, OD
     Route: 048

REACTIONS (3)
  - No adverse event [Unknown]
  - Medication residue present [Not Recovered/Not Resolved]
  - Product quality issue [Unknown]

NARRATIVE: CASE EVENT DATE: 201512
